FAERS Safety Report 22278363 (Version 1)
Quarter: 2023Q2

REPORT INFORMATION
  Report Type: Spontaneous
  Country: DE (occurrence: DE)
  Receive Date: 20230503
  Receipt Date: 20230503
  Transmission Date: 20230721
  Serious: Yes (Other)
  Sender: FDA-Public Use
  Company Number: None

PATIENT
  Sex: Male

DRUGS (13)
  1. GEMCITABINE [Suspect]
     Active Substance: GEMCITABINE
     Indication: Diffuse large B-cell lymphoma
     Dosage: 2ND LINE, R-GDP, 3 CYCLES
     Route: 065
     Dates: start: 20210301, end: 20210510
  2. DEXAMETHASONE [Suspect]
     Active Substance: DEXAMETHASONE
     Indication: Diffuse large B-cell lymphoma
     Dosage: 2ND LINE, R-GDP, 3 CYCLES
     Route: 065
     Dates: start: 20210301, end: 20210310
  3. VINCRISTINE [Suspect]
     Active Substance: VINCRISTINE
     Indication: Diffuse large B-cell lymphoma
     Dosage: 1ST LINE, R-CHOP
     Route: 065
     Dates: start: 20200101, end: 20200605
  4. PREDNISONE [Suspect]
     Active Substance: PREDNISONE
     Indication: Diffuse large B-cell lymphoma
     Dosage: 1ST LINE, R-CHOP
     Route: 065
     Dates: start: 20200101, end: 20200605
  5. CISPLATIN [Suspect]
     Active Substance: CISPLATIN
     Indication: Diffuse large B-cell lymphoma
     Dosage: 2ND LINE, R-GDP, 3 CYCLES
     Route: 065
     Dates: start: 20210301, end: 20210510
  6. OXALIPLATIN [Suspect]
     Active Substance: OXALIPLATIN
     Indication: Diffuse large B-cell lymphoma
     Dosage: 4TH LINE, R-GEMOX
     Route: 065
     Dates: start: 20221125, end: 20230126
  7. TAFASITAMAB-CXIX [Suspect]
     Active Substance: TAFASITAMAB-CXIX
     Indication: Diffuse large B-cell lymphoma
     Route: 065
     Dates: start: 20230210, end: 20230411
  8. CYCLOPHOSPHAMIDE [Suspect]
     Active Substance: CYCLOPHOSPHAMIDE
     Indication: Diffuse large B-cell lymphoma
     Dosage: 1ST LINE, R-CHOP
     Route: 065
     Dates: start: 20200101, end: 20200605
  9. RITUXIMAB [Suspect]
     Active Substance: RITUXIMAB
     Indication: Diffuse large B-cell lymphoma
     Dosage: 2ND LINE, R-GDP
     Route: 065
     Dates: start: 20210301, end: 20210510
  10. RITUXIMAB [Suspect]
     Active Substance: RITUXIMAB
     Dosage: 1ST LINE, R-CHOP
     Dates: start: 20200101, end: 20200605
  11. RITUXIMAB [Suspect]
     Active Substance: RITUXIMAB
     Dosage: 4TH LINE, R-GEMOX
     Dates: start: 20221125, end: 20230126
  12. LENALIDOMIDE [Suspect]
     Active Substance: LENALIDOMIDE
     Indication: Diffuse large B-cell lymphoma
     Route: 065
     Dates: start: 20230210, end: 20230411
  13. DOXORUBICIN [Suspect]
     Active Substance: DOXORUBICIN
     Indication: Diffuse large B-cell lymphoma
     Dosage: 1ST LINE, R-CHOP
     Route: 065
     Dates: start: 20200101, end: 20200605

REACTIONS (1)
  - Lymphoma [Not Recovered/Not Resolved]
